FAERS Safety Report 12204344 (Version 2)
Quarter: 2016Q2

REPORT INFORMATION
  Report Type: Spontaneous
  Country: GR (occurrence: GR)
  Receive Date: 20160323
  Receipt Date: 20160524
  Transmission Date: 20160815
  Serious: Yes (Other)
  Sender: FDA-Public Use
  Company Number: GR-PFIZER INC-2016163986

PATIENT
  Age: 57 Year
  Sex: Male

DRUGS (8)
  1. LYRICA [Suspect]
     Active Substance: PREGABALIN
     Indication: NEURALGIA
     Dosage: 125 MG, DAILY (50 MG IN THE MORNING, 75 MG IN THE NIGHT)
  2. EZETROL [Concomitant]
     Active Substance: EZETIMIBE
  3. NORVASC [Concomitant]
     Active Substance: AMLODIPINE BESYLATE
  4. LOBIVON [Concomitant]
     Active Substance: NEBIVOLOL HYDROCHLORIDE
  5. MONOSORDIL [Concomitant]
  6. ATROST [Concomitant]
     Active Substance: ATORVASTATIN CALCIUM
  7. HELIDES [Concomitant]
     Indication: PROPHYLAXIS
     Dosage: UNK
  8. SALOSPIR [Concomitant]
     Active Substance: ASPIRIN

REACTIONS (3)
  - Chest pain [Recovered/Resolved]
  - Agitation [Recovered/Resolved]
  - Angina pectoris [Recovered/Resolved]
